FAERS Safety Report 16445917 (Version 1)
Quarter: 2019Q2

REPORT INFORMATION
  Report Type: Report from Study
  Country: US (occurrence: US)
  Receive Date: 20190618
  Receipt Date: 20190618
  Transmission Date: 20190711
  Serious: Yes (Death)
  Sender: FDA-Public Use
  Company Number: US-PFIZER INC-2019261018

PATIENT

DRUGS (6)
  1. PACLITAXEL. [Suspect]
     Active Substance: PACLITAXEL
     Indication: SMALL CELL LUNG CANCER EXTENSIVE STAGE
     Dosage: 150 MG/M2, CYCLIC (OVER 3 HOURS WEEKLY FOR 6 CONSECUTIVE WEEKS EVERY 8 WEEKS)
     Route: 042
  2. FAMOTIDINE. [Concomitant]
     Active Substance: FAMOTIDINE
     Indication: PROPHYLAXIS
     Dosage: 20 MG, CYCLIC (30 MINUTES BEFORE PACLITAXEL)
     Route: 042
  3. DIPHENHYDRAMINE HYDROCHLORIDE. [Concomitant]
     Active Substance: DIPHENHYDRAMINE HYDROCHLORIDE
     Indication: PROPHYLAXIS
     Dosage: 50 G, CYCLIC (30 MINUTES BEFORE PACLITAXEL)
     Route: 042
  4. RANITIDINE. [Concomitant]
     Active Substance: RANITIDINE
     Indication: PROPHYLAXIS
     Dosage: 50 MG, CYCLIC (30 MINUTES BEFORE PACLITAXEL)
     Route: 042
  5. DEXAMETHASONE. [Concomitant]
     Active Substance: DEXAMETHASONE
     Indication: PROPHYLAXIS
     Dosage: 20 MG, CYCLIC (12 AND 6 HOURS BEFORE OR 20 MG IV 30 MINUTES BEFORE PACLITAXEL)
     Route: 048
  6. CIMETIDINE [Concomitant]
     Active Substance: CIMETIDINE
     Indication: PROPHYLAXIS
     Dosage: 300 MG, CYCLIC (30 MINUTES BEFORE PACLITAXEL)
     Route: 042

REACTIONS (1)
  - Pneumonitis [Fatal]
